FAERS Safety Report 10184404 (Version 1)
Quarter: 2014Q2

REPORT INFORMATION
  Report Type: Spontaneous
  Country: GB (occurrence: GB)
  Receive Date: 20140521
  Receipt Date: 20140521
  Transmission Date: 20141212
  Serious: Yes (Hospitalization)
  Sender: FDA-Public Use
  Company Number: GB-ROCHE-1403987

PATIENT
  Age: 35 Year
  Sex: Female
  Weight: 68 kg

DRUGS (9)
  1. KADCYLA [Suspect]
     Indication: BREAST CANCER METASTATIC
     Route: 042
     Dates: start: 20140416
  2. FRAGMIN [Interacting]
     Indication: PRODUCT USED FOR UNKNOWN INDICATION
     Route: 065
  3. ACETAZOLAMIDE [Concomitant]
  4. DICLOFENAC [Concomitant]
     Indication: PAIN
     Route: 048
  5. FLUOXETINE [Concomitant]
  6. HERCEPTIN [Concomitant]
     Route: 065
  7. PARACETAMOL [Concomitant]
  8. PREGABALIN [Concomitant]
  9. PROPRANOLOL [Concomitant]
     Indication: PAIN
     Route: 048

REACTIONS (3)
  - Contusion [Recovering/Resolving]
  - Coagulopathy [Recovering/Resolving]
  - Drug interaction [Unknown]
